FAERS Safety Report 12867569 (Version 3)
Quarter: 2016Q4

REPORT INFORMATION
  Report Type: Report from Study
  Country: None (occurrence: TW)
  Receive Date: 20161020
  Receipt Date: 20161216
  Transmission Date: 20170207
  Serious: Yes (Hospitalization, Other)
  Sender: FDA-Public Use
  Company Number: TW-ABBVIE-16K-153-1726435-00

PATIENT
  Age: 23 Year
  Sex: Male
  Weight: 52.5 kg

DRUGS (2)
  1. HUMIRA [Suspect]
     Active Substance: ADALIMUMAB
     Indication: CROHN^S DISEASE
     Route: 058
     Dates: start: 20150629, end: 20160824
  2. HUMIRA [Suspect]
     Active Substance: ADALIMUMAB
     Route: 058
     Dates: end: 20161012

REACTIONS (19)
  - Melaena [Recovering/Resolving]
  - Pyrexia [Unknown]
  - Ileus [Unknown]
  - Pulmonary mass [Unknown]
  - Peritoneal abscess [Recovering/Resolving]
  - Pulmonary tuberculosis [Recovering/Resolving]
  - Decreased appetite [Unknown]
  - Bronchiolitis [Unknown]
  - Pulmonary fibrosis [Unknown]
  - Colectomy [Unknown]
  - Peritonitis [Recovered/Resolved]
  - Cholelithiasis [Unknown]
  - Cholelithiasis [Unknown]
  - Abdominal pain [Recovering/Resolving]
  - Spleen disorder [Unknown]
  - Small intestinal resection [Recovering/Resolving]
  - Pyrexia [Recovered/Resolved]
  - Postoperative wound complication [Recovering/Resolving]
  - Fungal infection [Unknown]

NARRATIVE: CASE EVENT DATE: 2016
